FAERS Safety Report 8417604-1 (Version None)
Quarter: 2012Q2

REPORT INFORMATION
  Report Type: 
  Country: None (occurrence: None)
  Receive Date: 20120606
  Receipt Date: 20120529
  Transmission Date: 20120825
  Serious: Yes (Death, Other)
  Sender: FDA-Public Use
  Company Number: DE-ROCHE-1075531

PATIENT
  Age: 5 Week
  Sex: Female

DRUGS (2)
  1. HEPARIN [Suspect]
     Indication: THROMBOSIS
  2. ALTEPLASE [Suspect]
     Indication: THROMBOSIS

REACTIONS (4)
  - HAEMORRHAGE INTRACRANIAL [None]
  - RENAL ISCHAEMIA [None]
  - HYDROCEPHALUS [None]
  - INTESTINAL ISCHAEMIA [None]
